FAERS Safety Report 8022259-4 (Version None)
Quarter: 2012Q1

REPORT INFORMATION
  Report Type: 
  Country: None (occurrence: None)
  Receive Date: 20120104
  Receipt Date: 20111227
  Transmission Date: 20120608
  Serious: Yes (Death)
  Sender: FDA-Public Use
  Company Number: US-SANOFI-AVENTIS-2011SA085170

PATIENT
  Age: 57 Year
  Sex: Male
  Weight: 88 kg

DRUGS (1)
  1. PLAVIX [Suspect]
     Route: 065

REACTIONS (1)
  - DEATH [None]
